FAERS Safety Report 9683939 (Version 8)
Quarter: 2017Q2

REPORT INFORMATION
  Report Type: Report from Study
  Country: CZ (occurrence: CZ)
  Receive Date: 20131112
  Receipt Date: 20170622
  Transmission Date: 20170830
  Serious: Yes (Death, Hospitalization)
  Sender: FDA-Public Use
  Company Number: CZ-ROCHE-1226638

PATIENT
  Age: 79 Year
  Sex: Male
  Weight: 84 kg

DRUGS (14)
  1. OBINUTUZUMAB [Suspect]
     Active Substance: OBINUTUZUMAB
     Indication: NON-HODGKIN^S LYMPHOMA
     Dosage: LAST DOSE: 1000(UNIT NOT REPORTED) ON 26/MAR/2013
     Route: 042
     Dates: start: 20120626, end: 20130326
  2. SORTIS [Concomitant]
     Active Substance: ATORVASTATIN
     Indication: HYPERCHOLESTEROLAEMIA
     Dosage: 10 MG
     Route: 065
  3. GLYMEXAN [Concomitant]
     Active Substance: GLIMEPIRIDE
     Indication: DIABETES MELLITUS
  4. CIPRINOL [Concomitant]
     Active Substance: CIPROFLOXACIN
     Indication: URINARY TRACT INFECTION
     Route: 065
     Dates: start: 20130620, end: 20130624
  5. RULID [Concomitant]
     Active Substance: ROXITHROMYCIN
     Route: 065
     Dates: start: 20121106
  6. KALNORMIN [Concomitant]
     Active Substance: POTASSIUM CHLORIDE
     Indication: HYPOKALAEMIA
     Route: 065
     Dates: start: 20121204, end: 20130227
  7. VALSACOMBI [Concomitant]
     Indication: HYPERTENSION
     Dosage: 160/25 MG
     Route: 065
  8. FURON [Concomitant]
     Active Substance: FUROSEMIDE
     Indication: OEDEMA PERIPHERAL
     Route: 065
     Dates: start: 20121020
  9. OMNIC TOCAS [Concomitant]
     Indication: BENIGN PROSTATIC HYPERPLASIA
     Dosage: 0.4 MG
     Route: 065
  10. FROMILID [Concomitant]
     Active Substance: CLARITHROMYCIN
     Indication: PYREXIA
     Route: 065
     Dates: start: 20130208, end: 20130227
  11. AVODART [Concomitant]
     Active Substance: DUTASTERIDE
     Indication: BENIGN PROSTATIC HYPERPLASIA
     Dosage: 0.5 MG
     Route: 065
  12. URSOSAN [Concomitant]
     Indication: LIVER DISORDER
     Route: 065
     Dates: start: 20130422
  13. BENDAMUSTINE [Suspect]
     Active Substance: BENDAMUSTINE
     Indication: NON-HODGKIN^S LYMPHOMA
     Route: 042
     Dates: start: 20120626, end: 20121205
  14. HERPESIN [Concomitant]
     Indication: PROPHYLAXIS
     Route: 065
     Dates: start: 20130326

REACTIONS (2)
  - Bladder cancer [Fatal]
  - Pyrexia [Recovered/Resolved]

NARRATIVE: CASE EVENT DATE: 20130227
